FAERS Safety Report 9671260 (Version 1)
Quarter: 2013Q4

REPORT INFORMATION
  Report Type: Spontaneous
  Country: IT (occurrence: IT)
  Receive Date: 20131106
  Receipt Date: 20131106
  Transmission Date: 20140711
  Serious: Yes (Hospitalization)
  Sender: FDA-Public Use
  Company Number: IT-TEVA-441553ISR

PATIENT
  Age: 63 Year
  Sex: Female

DRUGS (6)
  1. VENLAFAXINA CLORIDRATO [Suspect]
     Indication: DEPRESSION
     Dosage: 150 MILLIGRAM DAILY;
     Route: 048
     Dates: start: 20130920, end: 20130920
  2. CARDIOASPIRIN 100 MG [Concomitant]
     Dosage: GASTRORESISTANT TABLET
  3. SIVASTIN 20 MG [Concomitant]
  4. LYRICA 75 MG [Concomitant]
     Indication: DEPRESSION
  5. TACHIDOL 500MG/30MG [Concomitant]
     Indication: BACK PAIN
     Dosage: EFFERVESCENT GRANULE; 1 DOSAGE FORM: 500 MG PARACETAMOL + 30MG CODEINE PHOSPHATE
  6. DELAPRIDE 30MG/2.5 MG [Concomitant]
     Indication: HYPERTENSION
     Dosage: 1 DOSAGE FORM: 30MG DELAPRIL + 2.5MG  INDAPAMIDE

REACTIONS (5)
  - Anxiety [Recovering/Resolving]
  - Fluid overload [Recovering/Resolving]
  - Nausea [Recovering/Resolving]
  - Retching [Recovering/Resolving]
  - Paraesthesia [Recovering/Resolving]
